FAERS Safety Report 6982096-6 (Version None)
Quarter: 2010Q3

REPORT INFORMATION
  Report Type: 
  Country: None (occurrence: None)
  Receive Date: 20100914
  Receipt Date: 20091119
  Transmission Date: 20110219
  Serious: No
  Sender: FDA-Public Use
  Company Number: US-PFIZER INC-2009301272

PATIENT
  Sex: Female

DRUGS (2)
  1. LYRICA [Suspect]
     Indication: TRIGEMINAL NEURALGIA
     Dosage: 50 MG PER DAY
     Dates: start: 20090101
  2. LYRICA [Suspect]
     Dosage: UNK
     Dates: start: 20090101

REACTIONS (2)
  - DEPRESSION [None]
  - WEIGHT INCREASED [None]
